FAERS Safety Report 13414277 (Version 1)
Quarter: 2017Q2

REPORT INFORMATION
  Report Type: Spontaneous
  Country: US (occurrence: US)
  Receive Date: 20170407
  Receipt Date: 20170407
  Transmission Date: 20170830
  Serious: Yes (Life-Threatening, Hospitalization, Other)
  Sender: FDA-Public Use
  Company Number: US-MYLANLABS-2017M1021399

PATIENT

DRUGS (2)
  1. CARBAMAZEPINE. [Suspect]
     Active Substance: CARBAMAZEPINE
     Indication: OVERDOSE
     Route: 065
  2. ATENOLOL. [Suspect]
     Active Substance: ATENOLOL
     Indication: OVERDOSE
     Route: 065

REACTIONS (5)
  - Overdose [Unknown]
  - Acute respiratory distress syndrome [Unknown]
  - Pulmonary oedema [Unknown]
  - Blood pressure decreased [Unknown]
  - Coma [Recovering/Resolving]
